FAERS Safety Report 7610296-0 (Version None)
Quarter: 2011Q3

REPORT INFORMATION
  Report Type: 
  Country: None (occurrence: None)
  Receive Date: 20110713
  Receipt Date: 20110713
  Transmission Date: 20111222
  Serious: No
  Sender: FDA-Public Use
  Company Number: None

PATIENT
  Sex: Male
  Weight: 78.4723 kg

DRUGS (2)
  1. RISPERDAL [Suspect]
     Indication: PSYCHOTIC DISORDER
  2. RISPERDAL [Suspect]
     Indication: HALLUCINATION, AUDITORY

REACTIONS (3)
  - SOMNOLENCE [None]
  - FATIGUE [None]
  - MENTAL DISORDER [None]
